FAERS Safety Report 15150061 (Version 1)
Quarter: 2018Q3

REPORT INFORMATION
  Report Type: Spontaneous
  Country: EG (occurrence: EG)
  Receive Date: 20180716
  Receipt Date: 20180716
  Transmission Date: 20181010
  Serious: Yes (Death, Other)
  Sender: FDA-Public Use
  Company Number: EG-BRISTOL-MYERS SQUIBB COMPANY-BMS-2018-065368

PATIENT

DRUGS (1)
  1. GLUCOPHAGE [Suspect]
     Active Substance: METFORMIN HYDROCHLORIDE
     Indication: SUICIDAL IDEATION
     Route: 065

REACTIONS (2)
  - Completed suicide [Fatal]
  - Overdose [Fatal]
